FAERS Safety Report 9156395 (Version 1)
Quarter: 2013Q1

REPORT INFORMATION
  Report Type: Spontaneous
  Country: US (occurrence: US)
  Receive Date: 20130312
  Receipt Date: 20130312
  Transmission Date: 20140127
  Serious: No
  Sender: FDA-Public Use
  Company Number: US-BIOGENIDEC-2013BI012590

PATIENT
  Age: 61 Year
  Sex: Female

DRUGS (1)
  1. AVONEX [Suspect]
     Indication: MULTIPLE SCLEROSIS
     Route: 030
     Dates: start: 19990721

REACTIONS (5)
  - Influenza [Recovered/Resolved]
  - Incontinence [Not Recovered/Not Resolved]
  - Blood creatinine increased [Unknown]
  - Fluid retention [Unknown]
  - Influenza like illness [Recovered/Resolved with Sequelae]
